FAERS Safety Report 20369453 (Version 1)
Quarter: 2022Q1

REPORT INFORMATION
  Report Type: Spontaneous
  Country: US (occurrence: US)
  Receive Date: 20220124
  Receipt Date: 20220124
  Transmission Date: 20220423
  Serious: No
  Sender: FDA-Public Use
  Company Number: US-SA-SAC20220118000776

PATIENT
  Age: 35 Year
  Sex: Female
  Weight: 134.21 kg

DRUGS (2)
  1. DUPIXENT [Suspect]
     Active Substance: DUPILUMAB
     Indication: Dermatitis atopic
     Dosage: 300 MG, QOW
     Route: 058
     Dates: start: 20201125
  2. DUPIXENT [Suspect]
     Active Substance: DUPILUMAB
     Indication: Multiple sclerosis

REACTIONS (4)
  - Pruritus [Unknown]
  - Skin exfoliation [Unknown]
  - Drug ineffective [Unknown]
  - Product use in unapproved indication [Unknown]
